FAERS Safety Report 4846421-4 (Version None)
Quarter: 2005Q4

REPORT INFORMATION
  Report Type: 
  Country: None (occurrence: None)
  Receive Date: 20051202
  Receipt Date: 20051123
  Transmission Date: 20060501
  Serious: Yes (Hospitalization)
  Sender: FDA-Public Use
  Company Number: SU-2005-004137

PATIENT
  Age: 56 Year
  Sex: Male
  Weight: 120.2032 kg

DRUGS (4)
  1. BENICAR [Suspect]
     Indication: HYPERTENSION
     Dosage: 40 MG QD PO
     Route: 048
     Dates: start: 20030101
  2. CRESTOR [Concomitant]
  3. METFORMIN [Concomitant]
  4. LANTUS [Concomitant]

REACTIONS (3)
  - ARTHROPATHY [None]
  - FALL [None]
  - TINNITUS [None]
